FAERS Safety Report 5842726-9 (Version None)
Quarter: 2008Q3

REPORT INFORMATION
  Report Type: 
  Country: None (occurrence: None)
  Receive Date: 20080808
  Receipt Date: 20080728
  Transmission Date: 20090109
  Serious: Yes (Other)
  Sender: FDA-Public Use
  Company Number: 236186J08USA

PATIENT
  Age: 39 Year
  Sex: Female
  Weight: 63.5036 kg

DRUGS (6)
  1. REBIF [Suspect]
     Indication: MULTIPLE SCLEROSIS
     Dosage: 44 MCG, 3 IN 1 WEEKS, SUBCUTANEOUS; 22 MCG, 3 IN 1, SUBCUTANEOUS
     Route: 058
     Dates: start: 20040909, end: 20060101
  2. REBIF [Suspect]
     Indication: MULTIPLE SCLEROSIS
     Dosage: 44 MCG, 3 IN 1 WEEKS, SUBCUTANEOUS; 22 MCG, 3 IN 1, SUBCUTANEOUS
     Route: 058
     Dates: start: 20060101
  3. ACETAMINOPHEN [Concomitant]
  4. METOCLOPRAMIDE (METOCLOPRAMIDE/00041901/) [Concomitant]
  5. ZANTAC [Concomitant]
  6. PENTASA [Concomitant]

REACTIONS (6)
  - CONVULSION [None]
  - CROHN'S DISEASE [None]
  - FATIGUE [None]
  - GASTROOESOPHAGEAL REFLUX DISEASE [None]
  - PETIT MAL EPILEPSY [None]
  - TREMOR [None]
